FAERS Safety Report 25598667 (Version 1)
Quarter: 2025Q3

REPORT INFORMATION
  Report Type: Spontaneous
  Country: CA (occurrence: CA)
  Receive Date: 20250724
  Receipt Date: 20250724
  Transmission Date: 20251021
  Serious: Yes (Other)
  Sender: ROCHE
  Company Number: CA-ROCHE-10000345697

PATIENT
  Sex: Male

DRUGS (1)
  1. OCREVUS [Suspect]
     Active Substance: OCRELIZUMAB
     Indication: Multiple sclerosis
     Dosage: LAST TREATMENT ON 22-JAN-2025
     Route: 042

REACTIONS (3)
  - Mobility decreased [Unknown]
  - Visual impairment [Unknown]
  - Hemiparesis [Unknown]
